FAERS Safety Report 20253999 (Version 1)
Quarter: 2021Q4

REPORT INFORMATION
  Report Type: Report from Study
  Country: US (occurrence: US)
  Receive Date: 20211230
  Receipt Date: 20211230
  Transmission Date: 20220303
  Serious: No
  Sender: FDA-Public Use
  Company Number: US-NOVARTISTESTPH-NVSC2021US298887

PATIENT
  Sex: Male

DRUGS (1)
  1. ENTRESTO [Suspect]
     Active Substance: SACUBITRIL\VALSARTAN
     Indication: Product used for unknown indication
     Dosage: 24.26 MG, BID (24/26 MG)
     Route: 048

REACTIONS (4)
  - Seasonal allergy [Unknown]
  - Sinusitis [Unknown]
  - Cough [Unknown]
  - Infection [Unknown]

NARRATIVE: CASE EVENT DATE: 20210101
